FAERS Safety Report 8619100-5 (Version None)
Quarter: 2012Q3

REPORT INFORMATION
  Report Type: 
  Country: None (occurrence: None)
  Receive Date: 20120824
  Receipt Date: 20120822
  Transmission Date: 20120928
  Serious: Yes (Other)
  Sender: FDA-Public Use
  Company Number: PHHY2012AU072896

PATIENT
  Sex: Female

DRUGS (4)
  1. ZOLEDRONOC ACID [Suspect]
     Dosage: 5 MG, UNK
     Route: 042
     Dates: start: 20120621
  2. LIPITOR [Concomitant]
     Dosage: UNK UKN, UNK
  3. TEGRETOL [Concomitant]
     Dosage: UNK UKN, UNK
  4. MELOXICAM [Concomitant]
     Dosage: UNK UKN, UNK

REACTIONS (3)
  - MONOPLEGIA [None]
  - GAIT DISTURBANCE [None]
  - NAUSEA [None]
